FAERS Safety Report 16773924 (Version 1)
Quarter: 2019Q3

REPORT INFORMATION
  Report Type: Report from Study
  Country: None (occurrence: US)
  Receive Date: 20190904
  Receipt Date: 20190904
  Transmission Date: 20191005
  Serious: Yes (Hospitalization)
  Sender: FDA-Public Use
  Company Number: US-ABBVIE-19K-163-2894417-00

PATIENT
  Sex: Female
  Weight: 131.66 kg

DRUGS (3)
  1. HUMIRA [Suspect]
     Active Substance: ADALIMUMAB
     Indication: PSORIATIC ARTHROPATHY
     Route: 058
     Dates: end: 201712
  2. HUMIRA [Suspect]
     Active Substance: ADALIMUMAB
     Indication: OSTEOARTHRITIS
     Route: 058
     Dates: start: 201901
  3. HUMIRA [Suspect]
     Active Substance: ADALIMUMAB
     Indication: CHONDROCALCINOSIS PYROPHOSPHATE

REACTIONS (1)
  - Osteoarthritis [Recovered/Resolved]
